FAERS Safety Report 10017995 (Version 2)
Quarter: 2014Q2

REPORT INFORMATION
  Report Type: Spontaneous
  Country: US (occurrence: US)
  Receive Date: 20140318
  Receipt Date: 20140619
  Transmission Date: 20141212
  Serious: Yes (Hospitalization, Other)
  Sender: FDA-Public Use
  Company Number: US-BAYER-2014-039284

PATIENT
  Age: 35 Year
  Sex: Female
  Weight: 120.18 kg

DRUGS (3)
  1. MIRENA [Suspect]
     Indication: MENORRHAGIA
     Dosage: 20 MCG/24HR, CONT
     Route: 015
     Dates: start: 20121003, end: 20130123
  2. EXCEDRIN [ACETYLSALICYLIC ACID,CAFFEINE,PARACETAMOL] [Concomitant]
     Dosage: UNK
     Dates: start: 20130117
  3. IBUPROFEN [Concomitant]
     Dosage: UNK
     Dates: start: 20130117

REACTIONS (18)
  - Uterine perforation [None]
  - Injury [None]
  - Pain [None]
  - Emotional distress [None]
  - Anxiety [None]
  - Anhedonia [None]
  - Fear of disease [None]
  - Migraine [None]
  - Dizziness [None]
  - Vision blurred [None]
  - Uterine scar [None]
  - Device issue [None]
  - Genital haemorrhage [None]
  - Pelvic inflammatory disease [None]
  - Dysmenorrhoea [None]
  - Scar pain [None]
  - Menorrhagia [None]
  - Device defective [None]
